FAERS Safety Report 8448480-9 (Version None)
Quarter: 2012Q2

REPORT INFORMATION
  Report Type: 
  Country: None (occurrence: None)
  Receive Date: 20120612
  Receipt Date: 20120601
  Transmission Date: 20120825
  Serious: Yes (Life-Threatening)
  Sender: FDA-Public Use
  Company Number: 2012P1037113

PATIENT
  Sex: Male

DRUGS (1)
  1. TWINJECT 0.3 [Suspect]
     Indication: HYPERSENSITIVITY
     Dosage: 0.3 MG;PRN,X1;IM
     Route: 030
     Dates: start: 20120526, end: 20120526

REACTIONS (2)
  - EXPIRED DRUG ADMINISTERED [None]
  - DEVICE FAILURE [None]
